FAERS Safety Report 4771583-7 (Version None)
Quarter: 2005Q3

REPORT INFORMATION
  Report Type: 
  Country: None (occurrence: None)
  Receive Date: 20050914
  Receipt Date: 20050914
  Transmission Date: 20060218
  Serious: Yes (Hospitalization, Other)
  Sender: FDA-Public Use
  Company Number: None

PATIENT
  Sex: Male
  Weight: 84.1 kg

DRUGS (3)
  1. TEMODAR [Suspect]
     Indication: ASTROCYTOMA
     Dosage: SEE IMAGE
     Dates: start: 20050831
  2. RADIATION [Suspect]
     Dosage: SEE IMAGE
     Dates: start: 20050831
  3. DILANTIN [Concomitant]

REACTIONS (3)
  - ANTICONVULSANT DRUG LEVEL DECREASED [None]
  - DRUG DOSE OMISSION [None]
  - GRAND MAL CONVULSION [None]
